FAERS Safety Report 6140688-0 (Version None)
Quarter: 2009Q2

REPORT INFORMATION
  Report Type: 
  Country: None (occurrence: None)
  Receive Date: 20090402
  Receipt Date: 20090325
  Transmission Date: 20091009
  Serious: Yes (Death, Other)
  Sender: FDA-Public Use
  Company Number: US-BIOGENIDEC-2009BI005862

PATIENT
  Age: 55 Year
  Sex: Male

DRUGS (14)
  1. TYSABRI [Suspect]
     Indication: MULTIPLE SCLEROSIS
     Route: 042
     Dates: start: 20090217, end: 20090217
  2. LISINOPRIL [Concomitant]
  3. LASIX [Concomitant]
  4. COREG [Concomitant]
  5. ASPIRIN [Concomitant]
  6. PLAVIX [Concomitant]
  7. LIPITOR [Concomitant]
  8. POTASSIUM CHLORIDE [Concomitant]
  9. GABAPENTIN [Concomitant]
  10. PROVIGIL [Concomitant]
  11. CYMBALTA [Concomitant]
  12. NAMENDA [Concomitant]
  13. HUMULIN R [Concomitant]
  14. HUMULIN N [Concomitant]

REACTIONS (5)
  - CARDIAC ARREST [None]
  - CARDIAC FAILURE CONGESTIVE [None]
  - DYSPNOEA [None]
  - LOSS OF CONTROL OF LEGS [None]
  - PYREXIA [None]
